FAERS Safety Report 19563156 (Version 1)
Quarter: 2021Q3

REPORT INFORMATION
  Report Type: Spontaneous
  Country: NL (occurrence: NL)
  Receive Date: 20210716
  Receipt Date: 20210716
  Transmission Date: 20211014
  Serious: Yes (Other)
  Sender: FDA-Public Use
  Company Number: NL-TEVA-2021-NL-1932605

PATIENT
  Sex: Female
  Weight: 100 kg

DRUGS (6)
  1. MEBEVERINE CAPSULE MGA 200MG / BRAND NAME NOT SPECIFIED [Concomitant]
     Dosage: MODIFIED RELEASE CAPSULE, 200 MG (MILLIGRAM) ,THERAPY START DATE AND END DATE : ASKU
  2. MAGNESIUMHYDROXIDE KAUWTABLET 724MG / BRAND NAME NOT SPECIFIED [Concomitant]
     Dosage: 724 MG (MILLIGRAM) ,THERAPY START DATE AND END DATE : ASKU
  3. LOSARTAN TABLET FO 100MG / BRAND NAME NOT SPECIFIED [Concomitant]
     Dosage: 100 MG (MILLIGRAM) ,THERAPY START DATE AND END DATE : ASKU
  4. ESOMEPRAZOL TABLET MSR 40MG / BRAND NAME NOT SPECIFIED [Concomitant]
     Dosage: 40 MG (MILLIGRAM) ,THERAPY START DATE AND END DATE : ASKU
  5. COLECALCIFEROL CAPSULE   5600IE / BRAND NAME NOT SPECIFIED [Concomitant]
     Active Substance: CHOLECALCIFEROL
     Dosage: 5600 UNITS ,THERAPY START DATE AND END DATE : ASKU
  6. AMLODIPINE TABLET   5MG / BRAND NAME NOT SPECIFIED [Suspect]
     Active Substance: AMLODIPINE BESYLATE
     Indication: HYPERTENSION
     Dosage: 5 MILLIGRAM DAILY;
     Dates: start: 20210526, end: 20210528

REACTIONS (4)
  - Headache [Recovered/Resolved]
  - Restlessness [Recovered/Resolved]
  - Chest discomfort [Recovered/Resolved]
  - Dysarthria [Recovered/Resolved]
